FAERS Safety Report 9304837 (Version 1)
Quarter: 2013Q2

REPORT INFORMATION
  Report Type: Spontaneous
  Country: US (occurrence: None)
  Receive Date: 20130521
  Receipt Date: 20130521
  Transmission Date: 20140414
  Serious: Yes (Other)
  Sender: FDA-Public Use
  Company Number: None

PATIENT
  Age: 72 Year
  Sex: Female
  Weight: 68.95 kg

DRUGS (1)
  1. ZOFRAN [Suspect]
     Indication: ABDOMINAL PAIN
     Route: 040
     Dates: start: 20130502, end: 20130503

REACTIONS (7)
  - Sedation [None]
  - Somnolence [None]
  - Decubitus ulcer [None]
  - Rhabdomyolysis [None]
  - Thrombocytopenia [None]
  - Alanine aminotransferase increased [None]
  - Aspartate aminotransferase increased [None]
